FAERS Safety Report 7328259-1 (Version None)
Quarter: 2011Q1

REPORT INFORMATION
  Report Type: 
  Country: None (occurrence: None)
  Receive Date: 20110303
  Receipt Date: 20110217
  Transmission Date: 20110831
  Serious: Yes (Other)
  Sender: FDA-Public Use
  Company Number: JP-RANBAXY-2011RR-41793

PATIENT
  Age: 73 Year
  Sex: Female
  Weight: 55 kg

DRUGS (9)
  1. DOPAMINE [Suspect]
     Dosage: 15 UG/KG/MIN
  2. ROCURONIUM BROMIDE [Suspect]
     Dosage: UNK
  3. PROPOFOL [Suspect]
     Indication: SEDATION
     Dosage: UNK
  4. FENTANYL [Suspect]
     Dosage: UNK
  5. DOPAMINE [Concomitant]
     Dosage: 4 UG/KG/MIN
  6. NICORANDIL [Suspect]
  7. ADRENALINE [Suspect]
     Dosage: 2 MG, UNK
     Route: 042
  8. SEVOFLURANE [Suspect]
  9. MIDAZOLAM HCL [Suspect]
     Indication: ANAESTHESIA
     Dosage: 7.5 MG, UNK

REACTIONS (2)
  - CIRCULATORY COLLAPSE [None]
  - MYOCARDIAL ISCHAEMIA [None]
